FAERS Safety Report 6770886-4 (Version None)
Quarter: 2010Q2

REPORT INFORMATION
  Report Type: 
  Country: None (occurrence: None)
  Receive Date: 20100615
  Receipt Date: 20100608
  Transmission Date: 20101027
  Serious: Yes (Other)
  Sender: FDA-Public Use
  Company Number: US-AMGEN-QUU416911

PATIENT
  Sex: Male

DRUGS (2)
  1. NPLATE [Suspect]
     Indication: IDIOPATHIC THROMBOCYTOPENIC PURPURA
     Dates: start: 20090709, end: 20100218
  2. UNSPECIFIED ANTINEOPLASTIC AGENT [Concomitant]

REACTIONS (2)
  - HAEMATOLOGICAL MALIGNANCY [None]
  - THROMBOCYTOPENIA [None]
